FAERS Safety Report 4360179-7 (Version None)
Quarter: 2004Q2

REPORT INFORMATION
  Report Type: 
  Country: None (occurrence: None)
  Receive Date: 20040513
  Receipt Date: 20040507
  Transmission Date: 20050107
  Serious: Yes (Death)
  Sender: FDA-Public Use
  Company Number: US-JNJFOC-20040501450

PATIENT
  Age: 50 Year
  Sex: Male

DRUGS (1)
  1. DURAGESIC [Suspect]
     Indication: PAIN
     Dosage: 75 UG/HR, TRANSDERMAL
     Route: 062
     Dates: end: 20031205

REACTIONS (3)
  - CIRCULATORY COLLAPSE [None]
  - DRUG LEVEL INCREASED [None]
  - DRUG TOXICITY [None]
